FAERS Safety Report 9249699 (Version 1)
Quarter: 2013Q2

REPORT INFORMATION
  Report Type: Spontaneous
  Country: US (occurrence: US)
  Receive Date: 20130423
  Receipt Date: 20130423
  Transmission Date: 20140414
  Serious: Yes (Death, Other)
  Sender: FDA-Public Use
  Company Number: US-JNJFOC-20130411862

PATIENT
  Age: 26 Year
  Sex: Male
  Weight: 63.5 kg

DRUGS (3)
  1. IMODIUM [Suspect]
     Route: 048
  2. IMODIUM [Suspect]
     Indication: INTENTIONAL DRUG MISUSE
     Route: 048
     Dates: start: 201210
  3. BENADRYL [Suspect]
     Indication: INTENTIONAL DRUG MISUSE
     Route: 065

REACTIONS (2)
  - Death [Fatal]
  - Intentional drug misuse [Unknown]
